FAERS Safety Report 14853765 (Version 1)
Quarter: 2018Q2

REPORT INFORMATION
  Report Type: Spontaneous
  Country: US (occurrence: US)
  Receive Date: 20180507
  Receipt Date: 20180507
  Transmission Date: 20180711
  Serious: No
  Sender: FDA-Public Use
  Company Number: US-ALLERGAN-1750348US

PATIENT
  Sex: Male

DRUGS (1)
  1. GATIFLOXACIN SESQUIHYDRATE [Suspect]
     Active Substance: GATIFLOXACIN
     Indication: CATARACT OPERATION
     Dosage: 2 GTT, QID
     Route: 047
     Dates: start: 20170828

REACTIONS (4)
  - Product quality issue [Unknown]
  - Drug dose omission [Unknown]
  - Off label use [Unknown]
  - Vision blurred [Not Recovered/Not Resolved]

NARRATIVE: CASE EVENT DATE: 20170904
